FAERS Safety Report 20471640 (Version 1)
Quarter: 2022Q1

REPORT INFORMATION
  Report Type: Spontaneous
  Country: DE (occurrence: US)
  Receive Date: 20220214
  Receipt Date: 20220214
  Transmission Date: 20220423
  Serious: Yes (Other)
  Sender: FDA-Public Use
  Company Number: DE-ALKERMES INC.-ALK-2022-000643

PATIENT
  Age: 17 Year
  Sex: Male
  Weight: 63.492 kg

DRUGS (5)
  1. ARISTADA [Suspect]
     Active Substance: ARIPIPRAZOLE LAUROXIL
     Indication: Product used for unknown indication
     Dosage: 1064 MILLIGRAM, Q7WK
     Route: 030
     Dates: start: 20211115, end: 20211115
  2. ABILIFY [Suspect]
     Active Substance: ARIPIPRAZOLE
     Indication: Product used for unknown indication
     Dosage: 20 MILLIGRAM
  3. ABILIFY [Suspect]
     Active Substance: ARIPIPRAZOLE
     Dosage: 5 MILLIGRAM
  4. INTUNIV [Concomitant]
     Active Substance: GUANFACINE HYDROCHLORIDE
     Indication: Product used for unknown indication
     Dosage: UNK
     Route: 065
  5. VYVANSE [Concomitant]
     Active Substance: LISDEXAMFETAMINE DIMESYLATE
     Indication: Product used for unknown indication
     Dosage: UNK
     Route: 065

REACTIONS (13)
  - Suicidal ideation [Unknown]
  - Personality disorder [Unknown]
  - Impaired driving ability [Unknown]
  - Psychotic disorder [Unknown]
  - Delusion [Unknown]
  - Irritability [Unknown]
  - Behaviour disorder [Unknown]
  - Failed examinations [Unknown]
  - Product dose omission issue [Unknown]
  - Treatment noncompliance [Unknown]
  - Drug ineffective [Unknown]
  - Off label use [Unknown]
  - Aggression [Unknown]

NARRATIVE: CASE EVENT DATE: 20211101
